FAERS Safety Report 8235464-9 (Version None)
Quarter: 2012Q1

REPORT INFORMATION
  Report Type: 
  Country: None (occurrence: None)
  Receive Date: 20120322
  Receipt Date: 20120306
  Transmission Date: 20120608
  Serious: Yes (Congenital Anomaly)
  Sender: FDA-Public Use
  Company Number: FK201200776

PATIENT
  Age: 4 Week
  Sex: Female

DRUGS (3)
  1. METHOTREXATE [Suspect]
     Indication: RHEUMATOID ARTHRITIS
     Dosage: 15 MG
  2. HYDROXYCHLOROQUINE SULFATE [Suspect]
     Indication: RHEUMATOID ARTHRITIS
     Dosage: 400 MG
  3. FOLIC ACID [Concomitant]

REACTIONS (2)
  - ANTERIOR CHAMBER CLEAVAGE SYNDROME [None]
  - MATERNAL DRUGS AFFECTING FOETUS [None]
